FAERS Safety Report 9352488 (Version 3)
Quarter: 2014Q1

REPORT INFORMATION
  Report Type: Spontaneous
  Country: US (occurrence: US)
  Receive Date: 20130617
  Receipt Date: 20140328
  Transmission Date: 20141002
  Serious: Yes (Hospitalization)
  Sender: FDA-Public Use
  Company Number: US-B.I. PHARMACEUTICALS,INC./RIDGEFIELD-2013-BI-16732BP

PATIENT
  Sex: Female
  Weight: 86.18 kg

DRUGS (11)
  1. PRADAXA [Suspect]
     Indication: ATRIAL FIBRILLATION
     Dosage: 300 MG
     Route: 065
     Dates: start: 20120113, end: 20120320
  2. PRADAXA [Suspect]
     Indication: ANTICOAGULANT THERAPY
  3. VITAMIN E [Concomitant]
     Route: 065
  4. OMEGA-3 FATTY [Concomitant]
     Route: 065
  5. LOPRESSOR [Concomitant]
     Route: 065
  6. KLOR-CON [Concomitant]
     Route: 065
  7. HYDROCHLOROTHIAZIDE [Concomitant]
     Route: 065
  8. GLIMEPIRIDE [Concomitant]
     Route: 065
  9. DIGOXIN [Concomitant]
     Route: 065
  10. ALTACE [Concomitant]
     Route: 065
  11. ASPIRIN [Concomitant]
     Route: 065

REACTIONS (3)
  - Gastrointestinal haemorrhage [Unknown]
  - Anaemia [Unknown]
  - Contusion [Unknown]
